FAERS Safety Report 7286277-6 (Version None)
Quarter: 2011Q1

REPORT INFORMATION
  Report Type: 
  Country: None (occurrence: None)
  Receive Date: 20110128
  Receipt Date: 20110113
  Transmission Date: 20110831
  Serious: Yes (Death)
  Sender: FDA-Public Use
  Company Number: NSR_00128_2011

PATIENT
  Age: 39 Year
  Sex: Male

DRUGS (4)
  1. ALLOPURINOL [Suspect]
     Indication: PRODUCT USED FOR UNKNOWN INDICATION
     Dosage: (NOT THE PRESCRIBED AMOUNT ORAL)
     Route: 048
  2. SALICYLATES NOS (NOT SPECIFIED) [Suspect]
     Indication: PRODUCT USED FOR UNKNOWN INDICATION
     Dosage: (NOT THE PRESCRIBED AMOUNT ORAL)
     Route: 048
  3. COLCHICINE [Suspect]
     Indication: PRODUCT USED FOR UNKNOWN INDICATION
     Dosage: (NOT THE PRESCRIBED AMOUNT ORAL)
     Route: 048
  4. AMLODIPINE W/BENAZEPRIL [Suspect]
     Indication: PRODUCT USED FOR UNKNOWN INDICATION
     Dosage: (NOT THE PRESCRIBED AMOUNT ORAL)
     Route: 048

REACTIONS (9)
  - LACERATION [None]
  - OVERDOSE [None]
  - COMPLETED SUICIDE [None]
  - CIRCULATORY COLLAPSE [None]
  - RESUSCITATION [None]
  - POISONING [None]
  - VOMITING [None]
  - ABDOMINAL PAIN [None]
  - DIARRHOEA [None]
